FAERS Safety Report 5266008-1 (Version None)
Quarter: 2007Q1

REPORT INFORMATION
  Report Type: 
  Country: None (occurrence: None)
  Receive Date: 20070312
  Receipt Date: 20070312
  Transmission Date: 20070707
  Serious: Yes (Death)
  Sender: FDA-Public Use
  Company Number: None

PATIENT

DRUGS (2)
  1. PHENTERMINE [Suspect]
     Dosage: 30 MG QD PO
     Route: 048
     Dates: start: 20061224
  2. PHENTERMINE [Suspect]
     Dosage: 37.5 MG QD PO
     Route: 048

REACTIONS (1)
  - DRUG LEVEL INCREASED [None]
